FAERS Safety Report 25027342 (Version 2)
Quarter: 2025Q1

REPORT INFORMATION
  Report Type: Spontaneous
  Country: US (occurrence: US)
  Receive Date: 20250301
  Receipt Date: 20250301
  Transmission Date: 20250408
  Serious: No
  Sender: SANOFI AVENTIS
  Company Number: US-SA-2025SA057939

PATIENT

DRUGS (1)
  1. DUPIXENT [Suspect]
     Active Substance: DUPILUMAB

REACTIONS (4)
  - Injury associated with device [Unknown]
  - Needle issue [Unknown]
  - Accidental exposure to product [Unknown]
  - Exposure via skin contact [Unknown]
